FAERS Safety Report 7455751-1 (Version None)
Quarter: 2011Q2

REPORT INFORMATION
  Report Type: 
  Country: None (occurrence: None)
  Receive Date: 20110503
  Receipt Date: 20110428
  Transmission Date: 20111010
  Serious: Yes (Life-Threatening, Hospitalization, Other)
  Sender: FDA-Public Use
  Company Number: US-NOVOPROD-321798

PATIENT
  Sex: Female
  Weight: 94.33 kg

DRUGS (13)
  1. LASIX [Concomitant]
     Indication: HYPERTENSION
     Dosage: 40 MG, QD
     Route: 048
     Dates: start: 20030101
  2. COREG [Concomitant]
     Dosage: 6.25 MG, BID
  3. LASIX [Concomitant]
     Dosage: 80 MG, UNK
     Route: 042
  4. METFORMIN HYDROCHLORIDE [Concomitant]
     Indication: TYPE 2 DIABETES MELLITUS
     Dosage: 2000 MG, QD
     Route: 048
     Dates: start: 20040101
  5. BENAZEPRIL HYDROCHLORIDE [Concomitant]
  6. IDEG PDS290 [Suspect]
     Indication: TYPE 2 DIABETES MELLITUS
     Dosage: 24 IU, QD
     Route: 058
     Dates: start: 20091119, end: 20101116
  7. FLOMAX [Concomitant]
     Dosage: 64 UNK, BID
  8. IDEG PDS290 [Suspect]
     Dosage: 20 IU, QD
     Route: 058
     Dates: start: 20101202, end: 20110111
  9. IDEG PDS290 [Suspect]
     Dosage: UNK
     Dates: start: 20110211
  10. INSULATARD FLEXPEN HM(GE) [Suspect]
     Indication: TYPE 2 DIABETES MELLITUS
     Dosage: 20 IU, QD
     Route: 058
     Dates: start: 20101117, end: 20101201
  11. COREG [Concomitant]
     Indication: HYPERTENSION
     Dosage: 50 MG, QD
     Route: 048
     Dates: start: 20030101
  12. ZOCOR [Concomitant]
     Indication: HYPERCHOLESTEROLAEMIA
     Dosage: 20 MG, QD
     Route: 048
     Dates: start: 20030101
  13. COUMADIN [Concomitant]
     Indication: ATRIAL FIBRILLATION
     Dosage: 75 MG, QD
     Route: 048
     Dates: start: 20070101

REACTIONS (2)
  - CARDIAC FAILURE CONGESTIVE [None]
  - VENTRICULAR FIBRILLATION [None]
